FAERS Safety Report 4631391-4 (Version None)
Quarter: 2005Q2

REPORT INFORMATION
  Report Type: 
  Country: None (occurrence: None)
  Receive Date: 20050407
  Receipt Date: 20050322
  Transmission Date: 20051028
  Serious: Yes (Other)
  Sender: FDA-Public Use
  Company Number: 2005048602

PATIENT
  Age: 35 Year
  Sex: Male
  Weight: 68.0396 kg

DRUGS (9)
  1. AZITHROMYCIN [Suspect]
     Indication: BABESIOSIS
     Dosage: (500 MG), INTRAVENOUS
     Route: 042
     Dates: start: 20050301, end: 20050301
  2. ATORVASTATIN (ATORVASTATIN) [Concomitant]
  3. MODAFINIL [Concomitant]
  4. NYSTATIN [Concomitant]
  5. FLUCONAZOLE [Concomitant]
  6. VENLAFAXINE HCL [Concomitant]
  7. CARBAMAZEPINE [Concomitant]
  8. METOPROLOL TARTRATE [Concomitant]
  9. ATOVAQUONE [Concomitant]

REACTIONS (6)
  - ANXIETY [None]
  - HEART RATE INCREASED [None]
  - HYPERSENSITIVITY [None]
  - OCULOGYRATION [None]
  - SPEECH DISORDER [None]
  - TONGUE DISORDER [None]
